FAERS Safety Report 17712411 (Version 2)
Quarter: 2020Q2

REPORT INFORMATION
  Report Type: Report from Study
  Country: CA (occurrence: CA)
  Receive Date: 20200427
  Receipt Date: 20200508
  Transmission Date: 20200714
  Serious: Yes (Hospitalization)
  Sender: FDA-Public Use
  Company Number: CA-VERTEX PHARMACEUTICALS-2020-008587

PATIENT
  Age: 22 Year
  Sex: Female
  Weight: 44 kg

DRUGS (7)
  1. ELEXACAFTOR/TEZACAFTOR/IVACAFTOR AND IVACAFTOR [Suspect]
     Active Substance: ELEXACAFTOR\IVACAFTOR\TEZACAFTOR
     Indication: CYSTIC FIBROSIS
     Dosage: 100 MG ELEXACAFTOR/ 50 MG TEZACAFTOR/ 75 MG IVACAFTOR AM AND 150MG IVACAFTOR PM
     Route: 048
     Dates: start: 20200329, end: 20200406
  2. TOBRAMYCIN. [Concomitant]
     Active Substance: TOBRAMYCIN
     Indication: BACTERIAL DISEASE CARRIER
     Dosage: 80 MG, BID, 28 DAYS (ALTERNATINF MONTHS)
  3. HYPERTONIC SALINE SOLUTION [Concomitant]
     Active Substance: SODIUM CHLORIDE
     Indication: INCREASED VISCOSITY OF BRONCHIAL SECRETION
     Dosage: 4 MILLILITER, BID
  4. DORNASE ALFA. [Concomitant]
     Active Substance: DORNASE ALFA
     Indication: INCREASED VISCOSITY OF BRONCHIAL SECRETION
     Dosage: 2.5 MG, BID
  5. BUDESONIDE;SALMETEROL [Concomitant]
     Indication: INFLAMMATION
  6. AZTREONAM. [Concomitant]
     Active Substance: AZTREONAM
     Indication: BACTERIAL DISEASE CARRIER
     Dosage: 75 MG, TID, 28 DAYS (ALTERNATING MONTHS)
  7. BUDESONIDE;SALMETEROL [Concomitant]
     Indication: OBSTRUCTIVE AIRWAYS DISORDER
     Dosage: 200/ 6 MCG 2 PUFFS, BID

REACTIONS (1)
  - Faecaloma [Recovered/Resolved]

NARRATIVE: CASE EVENT DATE: 20200406
